FAERS Safety Report 7904702-1 (Version None)
Quarter: 2011Q4

REPORT INFORMATION
  Report Type: 
  Country: None (occurrence: None)
  Receive Date: 20111109
  Receipt Date: 20111101
  Transmission Date: 20120403
  Serious: Yes (Other)
  Sender: FDA-Public Use
  Company Number: JP-GLAXOSMITHKLINE-B0760056A

PATIENT
  Age: 5 Decade
  Sex: Male

DRUGS (2)
  1. LAMICTAL [Suspect]
     Indication: BIPOLAR DISORDER
     Route: 048
     Dates: start: 20110701
  2. VALPROATE SODIUM [Concomitant]
     Route: 048

REACTIONS (1)
  - PUSTULAR PSORIASIS [None]
